FAERS Safety Report 18555816 (Version 2)
Quarter: 2020Q4

REPORT INFORMATION
  Report Type: Report from Study
  Country: US (occurrence: US)
  Receive Date: 20201127
  Receipt Date: 20201218
  Transmission Date: 20210114
  Serious: No
  Sender: FDA-Public Use
  Company Number: NVSC2020US310831

PATIENT
  Sex: Male

DRUGS (1)
  1. ENTRESTO [Suspect]
     Active Substance: SACUBITRIL\VALSARTAN
     Indication: PRODUCT USED FOR UNKNOWN INDICATION
     Dosage: 50 MG, BID, 24.26 MG
     Route: 047
     Dates: start: 202009

REACTIONS (4)
  - Ejection fraction decreased [Unknown]
  - Weight fluctuation [Recovered/Resolved]
  - Incorrect route of product administration [Unknown]
  - Cardiac disorder [Unknown]
